FAERS Safety Report 5057819-6 (Version None)
Quarter: 2006Q3

REPORT INFORMATION
  Report Type: 
  Country: None (occurrence: None)
  Receive Date: 20060721
  Receipt Date: 20060302
  Transmission Date: 20061208
  Serious: No
  Sender: FDA-Public Use
  Company Number: US-GLAXOSMITHKLINE-A0595895A

PATIENT
  Age: 58 Year
  Sex: Female

DRUGS (5)
  1. AVANDIA [Suspect]
     Dosage: 1TAB TWICE PER DAY
     Route: 048
  2. SYNTHROID [Concomitant]
  3. VITAMINS [Concomitant]
  4. DIOVAN [Concomitant]
  5. ZOLOFT [Concomitant]

REACTIONS (3)
  - ABDOMINAL DISCOMFORT [None]
  - ABDOMINAL PAIN [None]
  - DRUG EFFECT DECREASED [None]
